FAERS Safety Report 8974830 (Version 2)
Quarter: 2013Q1

REPORT INFORMATION
  Report Type: Spontaneous
  Country: GR (occurrence: None)
  Receive Date: 20121211
  Receipt Date: 20121217
  Transmission Date: 20140127
  Serious: Yes (Other)
  Sender: FDA-Public Use
  Company Number: 2012-21891

PATIENT
  Age: 30 Year
  Sex: Male

DRUGS (2)
  1. ZOLPIDEM TARTRATE [Suspect]
     Indication: INSOMNIA
     Dosage: 200-300 MG PER NIGHT, REPRESENTING 20-30 TABLETS PER NIGHT, ORAL
     Route: 048
  2. COCAINE [Suspect]
     Indication: INSOMNIA
     Dosage: INHALED 5 GRAMS DAILY; THEN 3-4 GRAMS DAILY, RESPIRATORY

REACTIONS (15)
  - Amnesia [None]
  - Psychomotor hyperactivity [None]
  - Euphoric mood [None]
  - Agitation [None]
  - Drug abuse [None]
  - Condition aggravated [None]
  - Intentional drug misuse [None]
  - Overdose [None]
  - Drug interaction [None]
  - Logorrhoea [None]
  - Pathological gambling [None]
  - Hyperphagia [None]
  - Hypersomnia [None]
  - Drug withdrawal syndrome [None]
  - Depression [None]
